FAERS Safety Report 17227223 (Version 2)
Quarter: 2020Q1

REPORT INFORMATION
  Report Type: Spontaneous
  Country: US (occurrence: US)
  Receive Date: 20200103
  Receipt Date: 20200204
  Transmission Date: 20200409
  Serious: No
  Sender: FDA-Public Use
  Company Number: US-BIOGEN-2019BI00823216

PATIENT
  Age: 59 Year
  Sex: Female
  Weight: 90.35 kg

DRUGS (8)
  1. TIZANIDINE. [Concomitant]
     Active Substance: TIZANIDINE
     Route: 065
  2. JANUVIA [Concomitant]
     Active Substance: SITAGLIPTIN PHOSPHATE
     Route: 065
  3. LISINOPRIL. [Concomitant]
     Active Substance: LISINOPRIL
     Route: 065
  4. LYRICA [Concomitant]
     Active Substance: PREGABALIN
     Route: 065
  5. JOLIVETTE [Concomitant]
     Active Substance: NORETHINDRONE
     Route: 065
  6. TECFIDERA [Suspect]
     Active Substance: DIMETHYL FUMARATE
     Route: 048
     Dates: start: 20200128
  7. TECFIDERA [Suspect]
     Active Substance: DIMETHYL FUMARATE
     Indication: MULTIPLE SCLEROSIS
     Route: 048
  8. TECFIDERA [Suspect]
     Active Substance: DIMETHYL FUMARATE
     Route: 048

REACTIONS (3)
  - Fall [Recovered/Resolved]
  - Product dose omission [Unknown]
  - Tremor [Unknown]

NARRATIVE: CASE EVENT DATE: 20200128
